FAERS Safety Report 15439497 (Version 1)
Quarter: 2018Q3

REPORT INFORMATION
  Report Type: Report from Study
  Country: US (occurrence: US)
  Receive Date: 20180928
  Receipt Date: 20180928
  Transmission Date: 20181010
  Serious: Yes (Other)
  Sender: FDA-Public Use
  Company Number: US-ROCHE-2159506

PATIENT
  Age: 35 Year
  Sex: Male
  Weight: 93.07 kg

DRUGS (7)
  1. TOPAMAX [Concomitant]
     Active Substance: TOPIRAMATE
     Indication: HEADACHE
     Route: 048
     Dates: start: 20180131
  2. OCREVUS [Suspect]
     Active Substance: OCRELIZUMAB
     Dosage: 2 WEEK BETWEEN 1ST AND 2 ND DOSES THEN EVERY 6 MONTHS
     Route: 042
     Dates: start: 20180718
  3. FLOMAX [Concomitant]
     Active Substance: TAMSULOSIN HYDROCHLORIDE
     Dosage: FOR URINARY DYSFUNCTION?ONGOING:YES
     Route: 048
     Dates: start: 20180703
  4. OCREVUS [Suspect]
     Active Substance: OCRELIZUMAB
     Dosage: 16/AUG/2018,
     Route: 042
  5. OCREVUS [Suspect]
     Active Substance: OCRELIZUMAB
     Dosage: 30/AUG/2018
     Route: 042
  6. OCREVUS [Suspect]
     Active Substance: OCRELIZUMAB
     Indication: RELAPSING MULTIPLE SCLEROSIS
     Dosage: 1ST HALF DOSE IN LEFT ARM
     Route: 042
     Dates: start: 20180718
  7. SILDENAFIL. [Concomitant]
     Active Substance: SILDENAFIL
     Dosage: PRN, ONGOING;YES
     Route: 048
     Dates: start: 20180703

REACTIONS (3)
  - Swelling [Not Recovered/Not Resolved]
  - Rash [Recovering/Resolving]
  - Rash [Unknown]

NARRATIVE: CASE EVENT DATE: 20180720
